FAERS Safety Report 9446411 (Version 3)
Quarter: 2013Q4

REPORT INFORMATION
  Report Type: Report from Study
  Country: GB (occurrence: GB)
  Receive Date: 20130807
  Receipt Date: 20131112
  Transmission Date: 20140711
  Serious: Yes (Life-Threatening, Hospitalization, Other)
  Sender: FDA-Public Use
  Company Number: GB-PFIZER INC-2013229967

PATIENT
  Age: 79 Year
  Sex: Female

DRUGS (4)
  1. IBUPROFEN [Suspect]
     Indication: OSTEOARTHRITIS
     Dosage: 400 MG, 3X/DAY
     Route: 048
     Dates: start: 20110810, end: 20130515
  2. OMEPRAZOLE [Concomitant]
     Dosage: 20 MG, 1X/DAY
     Dates: start: 20120211, end: 20130515
  3. ASPIRIN [Concomitant]
     Dosage: 75 MG, 1X/DAY
     Dates: start: 20090125, end: 20130515
  4. CLARITHROMYCIN [Concomitant]
     Dosage: 500 MG, 2X/DAY
     Dates: start: 20130430, end: 20130514

REACTIONS (1)
  - Cardiac arrest [Recovering/Resolving]
